FAERS Safety Report 25146166 (Version 2)
Quarter: 2025Q2

REPORT INFORMATION
  Report Type: Spontaneous
  Country: HN (occurrence: HN)
  Receive Date: 20250401
  Receipt Date: 20250404
  Transmission Date: 20250717
  Serious: Yes (Life-Threatening)
  Sender: ASTELLAS
  Company Number: HN-ASTELLAS-2025-AER-018443

PATIENT
  Sex: Male

DRUGS (1)
  1. XTANDI [Suspect]
     Active Substance: ENZALUTAMIDE
     Indication: Hormone-refractory prostate cancer
     Route: 048

REACTIONS (2)
  - Loss of consciousness [Unknown]
  - Disorientation [Unknown]
